FAERS Safety Report 22004292 (Version 1)
Quarter: 2023Q1

REPORT INFORMATION
  Report Type: Spontaneous
  Country: SG (occurrence: SG)
  Receive Date: 20230217
  Receipt Date: 20230217
  Transmission Date: 20230417
  Serious: Yes (Other)
  Sender: FDA-Public Use
  Company Number: SG-SUN PHARMACEUTICAL INDUSTRIES LTD-2023R1-378703

PATIENT

DRUGS (10)
  1. MORPHINE [Suspect]
     Active Substance: MORPHINE
     Indication: Pain
     Dosage: UNK
     Route: 042
  2. ONDANSETRON [Suspect]
     Active Substance: ONDANSETRON
     Indication: Product used for unknown indication
     Dosage: UNK
     Route: 065
  3. PROPOFOL [Suspect]
     Active Substance: PROPOFOL
     Indication: Product used for unknown indication
     Dosage: 200 MILLIGRAM
     Route: 065
  4. ACETAMINOPHEN [Suspect]
     Active Substance: ACETAMINOPHEN
     Indication: Pain
     Dosage: UNK
     Route: 042
  5. REMIFENTANIL [Suspect]
     Active Substance: REMIFENTANIL
     Indication: Analgesic therapy
     Dosage: UNK
     Route: 065
  6. RANITIDINE [Suspect]
     Active Substance: RANITIDINE
     Indication: Product used for unknown indication
     Dosage: UNK
     Route: 065
  7. ROCURONIUM [Suspect]
     Active Substance: ROCURONIUM BROMIDE
     Indication: Anaesthesia
     Dosage: 60 MILLIGRAM
     Route: 065
  8. SEVOFLURANE [Suspect]
     Active Substance: SEVOFLURANE
     Indication: Anaesthesia
     Dosage: UNK
     Route: 065
  9. DEXAMETHASONE [Suspect]
     Active Substance: DEXAMETHASONE
     Indication: Product used for unknown indication
     Dosage: UNK
     Route: 065
  10. SODIUM CITRATE [Suspect]
     Active Substance: SODIUM CITRATE
     Indication: Product used for unknown indication
     Dosage: UNK
     Route: 065

REACTIONS (2)
  - Foetal monitoring abnormal [Unknown]
  - Foetal exposure during pregnancy [Unknown]
